FAERS Safety Report 7222228-8 (Version None)
Quarter: 2011Q1

REPORT INFORMATION
  Report Type: 
  Country: None (occurrence: None)
  Receive Date: 20110103
  Receipt Date: 20101229
  Transmission Date: 20110831
  Serious: Yes (Other)
  Sender: FDA-Public Use
  Company Number: 2010SP066440

PATIENT
  Age: 81 Year
  Sex: Female

DRUGS (12)
  1. CIPROFLOXACIN [Suspect]
     Indication: URINARY TRACT INFECTION
     Dosage: 500 MG;QD;PO
     Route: 048
     Dates: start: 20090425, end: 20090426
  2. KARDEGIC [Concomitant]
  3. LASIX [Concomitant]
  4. DISCOTRINE [Concomitant]
  5. KALEORID [Concomitant]
  6. CETORNAN [Concomitant]
  7. EQUANIL [Concomitant]
  8. PLAVIX [Concomitant]
  9. AERIUS (DESLORATADINE /01398501/) [Suspect]
     Indication: PRODUCT USED FOR UNKNOWN INDICATION
  10. CYMBALTA [Suspect]
     Indication: ANXIETY
     Dosage: 30 MG;QD;PO
     Route: 048
     Dates: start: 20090425, end: 20090426
  11. RAMIPRIL [Concomitant]
  12. BISOPROLOL [Concomitant]

REACTIONS (7)
  - URINARY TRACT INFECTION [None]
  - FALL [None]
  - HYPOTENSION [None]
  - HEPATITIS CHOLESTATIC [None]
  - CYTOLYTIC HEPATITIS [None]
  - ANXIETY [None]
  - PALLOR [None]
